FAERS Safety Report 7065096-X (Version None)
Quarter: 2010Q4

REPORT INFORMATION
  Report Type: 
  Country: None (occurrence: None)
  Receive Date: 20101027
  Receipt Date: 19911231
  Transmission Date: 20110411
  Serious: Yes (Death, Hospitalization)
  Sender: FDA-Public Use
  Company Number: FR-ROCHE-910500437001

PATIENT
  Age: 80 Year
  Sex: Female

DRUGS (2)
  1. ROCEPHIN [Suspect]
     Route: 042
     Dates: start: 19910130, end: 19910131
  2. GLUCIDORAL [Concomitant]
     Indication: DIABETES MELLITUS
     Route: 048

REACTIONS (2)
  - ANURIA [None]
  - DEATH [None]
